FAERS Safety Report 22119907 (Version 1)
Quarter: 2023Q1

REPORT INFORMATION
  Report Type: Spontaneous
  Country: CA (occurrence: CA)
  Receive Date: 20230321
  Receipt Date: 20230321
  Transmission Date: 20230418
  Serious: Yes (Other)
  Sender: FDA-Public Use
  Company Number: CA-002147023-NVSC2023CA058247

PATIENT
  Age: 38 Year
  Sex: Male

DRUGS (10)
  1. TERBINAFINE [Suspect]
     Active Substance: TERBINAFINE
     Indication: Trichophytosis
     Route: 061
  2. TERBINAFINE [Suspect]
     Active Substance: TERBINAFINE
     Indication: Fungal infection
  3. TERBINAFINE [Suspect]
     Active Substance: TERBINAFINE
     Indication: Trichophytosis
     Dosage: UNK
     Route: 065
  4. TERBINAFINE [Suspect]
     Active Substance: TERBINAFINE
     Indication: Fungal infection
     Dosage: 250 MG
     Route: 048
  5. BETAMETHASONE [Suspect]
     Active Substance: BETAMETHASONE
     Indication: Trichophytosis
     Dosage: 0.1 %
     Route: 061
  6. BETAMETHASONE [Suspect]
     Active Substance: BETAMETHASONE
     Indication: Fungal infection
  7. ITRACONAZOLE [Suspect]
     Active Substance: ITRACONAZOLE
     Indication: Trichophytosis
     Dosage: 100 MG
     Route: 048
  8. ITRACONAZOLE [Suspect]
     Active Substance: ITRACONAZOLE
     Indication: Fungal infection
     Dosage: UNK
     Route: 065
  9. KETOCONAZOLE [Suspect]
     Active Substance: KETOCONAZOLE
     Indication: Trichophytosis
     Dosage: UNK
     Route: 065
  10. KETOCONAZOLE [Suspect]
     Active Substance: KETOCONAZOLE
     Indication: Fungal infection
     Dosage: UNK
     Route: 065

REACTIONS (3)
  - Fungal infection [Unknown]
  - Rash [Unknown]
  - Drug ineffective [Unknown]
